FAERS Safety Report 17265503 (Version 2)
Quarter: 2020Q4

REPORT INFORMATION
  Report Type: Spontaneous
  Country: DE (occurrence: DE)
  Receive Date: 20200114
  Receipt Date: 20201208
  Transmission Date: 20210113
  Serious: Yes (Other)
  Sender: FDA-Public Use
  Company Number: DE-UCBSA-2020000510

PATIENT
  Age: 45 Year
  Sex: Female

DRUGS (3)
  1. CIMZIA [Suspect]
     Active Substance: CERTOLIZUMAB PEGOL
     Dosage: 200 MILLIGRAM, EV 4 WEEKS
     Route: 058
  2. CIMZIA [Suspect]
     Active Substance: CERTOLIZUMAB PEGOL
     Dosage: 200 MILLIGRAM, EV 3 WEEKS
     Route: 058
  3. CIMZIA [Suspect]
     Active Substance: CERTOLIZUMAB PEGOL
     Indication: RHEUMATOID ARTHRITIS
     Dosage: UNK UNK, EV 2 WEEKS(QOW)
     Dates: start: 2018

REACTIONS (8)
  - Fungal skin infection [Unknown]
  - Tinea versicolour [Unknown]
  - Dandruff [Unknown]
  - Off label use [Unknown]
  - Onychomycosis [Unknown]
  - Skin discolouration [Unknown]
  - Rheumatoid arthritis [Unknown]
  - Erythema [Unknown]

NARRATIVE: CASE EVENT DATE: 2019
